FAERS Safety Report 23280272 (Version 1)
Quarter: 2023Q4

REPORT INFORMATION
  Report Type: Spontaneous
  Country: IT (occurrence: IT)
  Receive Date: 20231210
  Receipt Date: 20231210
  Transmission Date: 20240109
  Serious: Yes (Hospitalization)
  Sender: FDA-Public Use
  Company Number: None

PATIENT
  Age: 43 Year
  Sex: Female

DRUGS (1)
  1. ERELZI [Suspect]
     Active Substance: ETANERCEPT-SZZS
     Indication: Rheumatoid arthritis
     Dosage: 50.000MG
     Route: 058
     Dates: start: 20181005, end: 20230628

REACTIONS (1)
  - Arthritis [Recovering/Resolving]

NARRATIVE: CASE EVENT DATE: 20230628
